FAERS Safety Report 10398918 (Version 2)
Quarter: 2014Q3

REPORT INFORMATION
  Report Type: Spontaneous
  Country: GB (occurrence: None)
  Receive Date: 20140819
  Receipt Date: 20140827
  Transmission Date: 20150326
  Serious: Yes (Death, Hospitalization, Other)
  Sender: FDA-Public Use
  Company Number: AUR-APL-2014-08698

PATIENT
  Age: 67 Year
  Sex: Male
  Weight: 70 kg

DRUGS (3)
  1. CIPROFLOXACIN. [Suspect]
     Active Substance: CIPROFLOXACIN
     Indication: PRODUCT USED FOR UNKNOWN INDICATION
  2. AMIODARONE [Suspect]
     Active Substance: AMIODARONE
     Indication: PRODUCT USED FOR UNKNOWN INDICATION
  3. ESBRIET [Suspect]
     Active Substance: PIRFENIDONE
     Indication: IDIOPATHIC PULMONARY FIBROSIS
     Route: 048
     Dates: end: 20140716

REACTIONS (13)
  - Dyspepsia [None]
  - No therapeutic response [None]
  - Renal failure acute [None]
  - Drug clearance decreased [None]
  - Gastritis [None]
  - Multi-organ failure [None]
  - Systemic inflammatory response syndrome [None]
  - Immunodeficiency [None]
  - Toxicity to various agents [None]
  - Nausea [None]
  - Urosepsis [None]
  - Malaise [None]
  - Drug interaction [None]

NARRATIVE: CASE EVENT DATE: 20140716
